FAERS Safety Report 7425677-8 (Version None)
Quarter: 2011Q2

REPORT INFORMATION
  Report Type: 
  Country: None (occurrence: None)
  Receive Date: 20110420
  Receipt Date: 20110415
  Transmission Date: 20111010
  Serious: No
  Sender: FDA-Public Use
  Company Number: US-TEVA-277236USA

PATIENT
  Sex: Female
  Weight: 54.48 kg

DRUGS (2)
  1. PRENATAL VITAMINS [Concomitant]
     Indication: MEDICAL DIET
  2. PLAN B ONE-STEP [Suspect]
     Indication: POST COITAL CONTRACEPTION
     Dosage: 1.5 MILLIGRAM;
     Route: 048
     Dates: start: 20110410, end: 20110410

REACTIONS (3)
  - MENSTRUATION IRREGULAR [None]
  - DRUG EXPOSURE VIA BREAST MILK [None]
  - PELVIC PAIN [None]
